FAERS Safety Report 5691587-X (Version None)
Quarter: 2008Q2

REPORT INFORMATION
  Report Type: 
  Country: None (occurrence: None)
  Receive Date: 20080402
  Receipt Date: 20080324
  Transmission Date: 20081010
  Serious: Yes (Hospitalization)
  Sender: FDA-Public Use
  Company Number: JP-JNJFOC-20080303401

PATIENT
  Sex: Female
  Weight: 52 kg

DRUGS (16)
  1. REMICADE [Suspect]
     Route: 042
  2. REMICADE [Suspect]
     Route: 042
  3. REMICADE [Suspect]
     Indication: RHEUMATOID ARTHRITIS
     Route: 042
  4. METOLATE [Suspect]
     Indication: RHEUMATOID ARTHRITIS
     Route: 048
  5. PREDNISOLONE [Suspect]
     Indication: RHEUMATOID ARTHRITIS
     Route: 048
  6. DIOVAN [Concomitant]
     Indication: HYPERTENSION
     Route: 048
  7. ONEALFA [Concomitant]
     Indication: OSTEOPOROSIS
     Route: 048
  8. ADALAT [Concomitant]
     Indication: HYPERTENSION
     Route: 048
  9. ISCOTIN [Concomitant]
     Indication: PULMONARY TUBERCULOSIS
     Route: 048
  10. PYDOXAL [Concomitant]
     Indication: PULMONARY TUBERCULOSIS
     Route: 048
  11. MUCOSTA [Concomitant]
     Indication: RHEUMATOID ARTHRITIS
     Route: 048
  12. LOXONIN [Concomitant]
     Indication: RHEUMATOID ARTHRITIS
     Route: 048
  13. TAKEPRON [Concomitant]
     Indication: GASTRIC ULCER
     Route: 048
  14. FOLIAMIN [Concomitant]
     Indication: RHEUMATOID ARTHRITIS
     Route: 048
  15. BONALON [Concomitant]
     Indication: OSTEOPOROSIS
     Route: 048
  16. MEDICAL OXYGEN [Concomitant]
     Route: 055

REACTIONS (1)
  - PNEUMOCYSTIS JIROVECI PNEUMONIA [None]
